FAERS Safety Report 9011813 (Version 1)
Quarter: 2013Q1

REPORT INFORMATION
  Report Type: Spontaneous
  Country: US (occurrence: US)
  Receive Date: 20130113
  Receipt Date: 20130113
  Transmission Date: 20140127
  Serious: Yes (Other)
  Sender: FDA-Public Use
  Company Number: US-009507513-0412USA01141

PATIENT
  Age: 73 Year
  Sex: Female

DRUGS (4)
  1. ZETIA [Suspect]
     Indication: HYPERLIPIDAEMIA
     Dosage: 10 MG, QD
     Route: 048
     Dates: start: 20041013, end: 20041113
  2. AVAPRO [Concomitant]
  3. SINGULAIR [Suspect]
     Indication: ASTHMA
     Dosage: 1 TABLET DAILY
     Route: 048
  4. SINGULAIR [Suspect]
     Indication: MULTIPLE ALLERGIES

REACTIONS (9)
  - Back pain [Recovered/Resolved]
  - Sinus disorder [Recovered/Resolved]
  - Thinking abnormal [Unknown]
  - Screaming [Unknown]
  - Psychotic disorder [Unknown]
  - Indifference [Unknown]
  - Crying [Unknown]
  - Convulsion [Unknown]
  - Anger [Unknown]
